FAERS Safety Report 24862633 (Version 4)
Quarter: 2025Q1

REPORT INFORMATION
  Report Type: Spontaneous
  Country: JP (occurrence: JP)
  Receive Date: 20250120
  Receipt Date: 20250311
  Transmission Date: 20250408
  Serious: Yes (Other)
  Sender: TEVA
  Company Number: JP-TEVA-VS-3286667

PATIENT
  Age: 83 Year
  Sex: Male

DRUGS (9)
  1. ESTAZOLAM [Suspect]
     Active Substance: ESTAZOLAM
     Indication: Product used for unknown indication
     Dosage: BEFORE BEDTIME
     Route: 065
  2. ESTAZOLAM [Suspect]
     Active Substance: ESTAZOLAM
     Indication: Product used for unknown indication
     Dosage: BEFORE BEDTIME
     Route: 048
  3. ESTAZOLAM [Suspect]
     Active Substance: ESTAZOLAM
     Indication: Product used for unknown indication
     Dosage: BEFORE BEDTIME
     Route: 048
  4. ALPRAZOLAM [Suspect]
     Active Substance: ALPRAZOLAM
     Indication: Product used for unknown indication
     Route: 048
  5. ALPRAZOLAM [Suspect]
     Active Substance: ALPRAZOLAM
     Indication: Product used for unknown indication
     Route: 048
     Dates: start: 20250110
  6. ALPRAZOLAM [Suspect]
     Active Substance: ALPRAZOLAM
     Indication: Product used for unknown indication
     Route: 048
     Dates: start: 20250109
  7. ALPRAZOLAM [Suspect]
     Active Substance: ALPRAZOLAM
     Indication: Product used for unknown indication
     Route: 048
     Dates: start: 20250110
  8. ALPRAZOLAM [Suspect]
     Active Substance: ALPRAZOLAM
     Indication: Product used for unknown indication
     Route: 048
  9. ALPRAZOLAM [Suspect]
     Active Substance: ALPRAZOLAM
     Indication: Product used for unknown indication
     Route: 048

REACTIONS (11)
  - Arrhythmia [Not Recovered/Not Resolved]
  - Somnolence [Not Recovered/Not Resolved]
  - Chest discomfort [Recovering/Resolving]
  - Drug ineffective [Unknown]
  - Heart valve incompetence [Unknown]
  - Insomnia [Unknown]
  - Chest discomfort [Not Recovered/Not Resolved]
  - Supraventricular extrasystoles [Not Recovered/Not Resolved]
  - Palpitations [Not Recovered/Not Resolved]
  - Therapeutic product effect incomplete [Unknown]
  - Constipation [Not Recovered/Not Resolved]

NARRATIVE: CASE EVENT DATE: 20241201
